FAERS Safety Report 7467641-9 (Version None)
Quarter: 2011Q2

REPORT INFORMATION
  Report Type: 
  Country: None (occurrence: None)
  Receive Date: 20110509
  Receipt Date: 20110428
  Transmission Date: 20111010
  Serious: Yes (Other)
  Sender: FDA-Public Use
  Company Number: FR-TEVA-269213ISR

PATIENT
  Sex: Male

DRUGS (3)
  1. ASPIRIN [Interacting]
     Indication: PROPHYLAXIS
     Dosage: AT MIDDDAY
     Route: 048
     Dates: start: 20110213, end: 20110214
  2. AZILECT [Suspect]
     Indication: PARKINSON'S DISEASE
     Dosage: 1 MILLIGRAM; IN THE MORNING
     Route: 048
     Dates: start: 20110209
  3. AVLOCARDYL [Concomitant]
     Indication: ESSENTIAL TREMOR
     Dosage: FROM 60 TO 40MG
     Route: 048

REACTIONS (10)
  - NASOPHARYNGITIS [None]
  - DIARRHOEA [None]
  - DIZZINESS [None]
  - DRUG INTERACTION [None]
  - VOMITING [None]
  - ARTHRALGIA [None]
  - HEADACHE [None]
  - TREMOR [None]
  - NECK PAIN [None]
  - NAUSEA [None]
